FAERS Safety Report 5402849-5 (Version None)
Quarter: 2007Q3

REPORT INFORMATION
  Report Type: 
  Country: None (occurrence: None)
  Receive Date: 20070727
  Receipt Date: 20070718
  Transmission Date: 20080115
  Serious: Yes (Life-Threatening)
  Sender: FDA-Public Use
  Company Number: 2007-160485-NL

PATIENT
  Age: 63 Year
  Sex: Male

DRUGS (20)
  1. VECURONIUM BROMIDE [Suspect]
     Indication: MUSCLE RELAXANT THERAPY
     Dosage: NI; INTRAVENOUS (NOS)
     Route: 042
     Dates: start: 20060818, end: 20060818
  2. VECURONIUM BROMIDE [Suspect]
     Indication: MUSCLE RELAXANT THERAPY
     Dosage: NI; INTRAVENOUS (NOS)
     Route: 042
     Dates: start: 20060904, end: 20060904
  3. VECURONIUM BROMIDE [Suspect]
     Indication: MUSCLE RELAXANT THERAPY
     Dosage: NI; INTRAVENOUS (NOS)
     Route: 042
     Dates: start: 20060905, end: 20060905
  4. PROPOFOL [Suspect]
     Indication: INDUCTION OF ANAESTHESIA
     Dosage: INTRAVENOUS (NOS)
     Route: 042
     Dates: start: 20060818, end: 20060818
  5. PROPOFOL [Suspect]
     Indication: SEDATION
     Dosage: INTRAVENOUS (NOS)
     Route: 042
     Dates: start: 20060818, end: 20060818
  6. PROPOFOL [Suspect]
     Indication: INDUCTION OF ANAESTHESIA
     Dosage: INTRAVENOUS (NOS)
     Route: 042
     Dates: start: 20060905, end: 20060905
  7. PROPOFOL [Suspect]
     Indication: SEDATION
     Dosage: INTRAVENOUS (NOS)
     Route: 042
     Dates: start: 20060905, end: 20060905
  8. PROPOFOL [Suspect]
     Indication: INDUCTION OF ANAESTHESIA
     Dosage: INTRAVENOUS (NOS)
     Route: 042
     Dates: start: 20060904, end: 20060905
  9. PROPOFOL [Suspect]
     Indication: SEDATION
     Dosage: INTRAVENOUS (NOS)
     Route: 042
     Dates: start: 20060904, end: 20060905
  10. FENTANYL CITRATE [Suspect]
     Indication: INDUCTION OF ANAESTHESIA
     Dosage: INTRAVENOUS (NOS)
     Route: 042
     Dates: start: 20060818, end: 20060818
  11. MIDAZOLAM HYDROCHLORIDE [Suspect]
     Indication: INDUCTION OF ANAESTHESIA
     Dosage: INTRAVENOUS (NOS)
     Route: 042
     Dates: start: 20060904, end: 20060904
  12. KETAMINE HYDROCHLORIDE [Suspect]
     Indication: INDUCTION OF ANAESTHESIA
     Dosage: INTRAVENOUS (NOS)
     Route: 042
     Dates: start: 20060904, end: 20060904
  13. SEVOFLURANE [Suspect]
     Indication: MAINTENANCE OF ANAESTHESIA
     Dosage: RESPIRATORY (INHALATION)
     Route: 055
     Dates: start: 20060905, end: 20060905
  14. DIAZEPAM [Concomitant]
  15. ROXATIDINE ACETATE HCL [Concomitant]
  16. ISOSORBIDE DINITRATE [Concomitant]
  17. NICORANDIL [Concomitant]
  18. DILTIAZEM HYDROCHLORIDE [Concomitant]
  19. DOPAMINE HCL [Concomitant]
  20. NOREPINEPHRINE [Concomitant]

REACTIONS (7)
  - ARTERIOSPASM CORONARY [None]
  - AUTONOMIC NERVOUS SYSTEM IMBALANCE [None]
  - BLOOD PRESSURE IMMEASURABLE [None]
  - CORONARY ARTERY STENOSIS [None]
  - ELECTROMECHANICAL DISSOCIATION [None]
  - SHOCK [None]
  - SINUS TACHYCARDIA [None]
